FAERS Safety Report 5162854-3 (Version None)
Quarter: 2006Q4

REPORT INFORMATION
  Report Type: 
  Country: None (occurrence: None)
  Receive Date: 20061201
  Receipt Date: 20020624
  Transmission Date: 20070319
  Serious: Yes (Hospitalization)
  Sender: FDA-Public Use
  Company Number: FR-GLAXOSMITHKLINE-B0271906A

PATIENT
  Sex: Male
  Weight: 3.5 kg

DRUGS (8)
  1. RETROVIR [Suspect]
     Indication: ANTIVIRAL PROPHYLAXIS
     Route: 048
     Dates: start: 19990801, end: 19990101
  2. RETROVIR [Suspect]
     Route: 042
     Dates: start: 19990802, end: 19990802
  3. RETROVIR [Suspect]
     Indication: HIV INFECTION
     Route: 048
     Dates: start: 19990101
  4. RETROVIR [Suspect]
     Route: 048
     Dates: start: 19990601, end: 19990802
  5. VIDEX [Suspect]
     Indication: HIV INFECTION
     Route: 048
  6. BACTRIM [Concomitant]
     Indication: DRUG USE FOR UNKNOWN INDICATION
     Route: 048
  7. COLPOSEPTINE [Concomitant]
     Indication: DRUG USE FOR UNKNOWN INDICATION
     Route: 067
  8. VITAMIN [Concomitant]
     Indication: DRUG USE FOR UNKNOWN INDICATION
     Route: 065

REACTIONS (10)
  - ASPARTATE AMINOTRANSFERASE INCREASED [None]
  - BLOOD CREATINE PHOSPHOKINASE INCREASED [None]
  - BLOOD KETONE BODY INCREASED [None]
  - BLOOD KETONE BODY PRESENT [None]
  - BLOOD LACTIC ACID INCREASED [None]
  - LABORATORY TEST ABNORMAL [None]
  - LACTATE PYRUVATE RATIO DECREASED [None]
  - METABOLIC DISORDER [None]
  - NEUTROPENIA [None]
  - THROMBOCYTHAEMIA [None]
